FAERS Safety Report 26070256 (Version 1)
Quarter: 2025Q4

REPORT INFORMATION
  Report Type: Spontaneous
  Country: US (occurrence: None)
  Receive Date: 20251119
  Receipt Date: 20251119
  Transmission Date: 20260119
  Serious: Yes (Disabling)
  Sender: FDA-CTU
  Company Number: None

PATIENT
  Age: 77 Year
  Sex: Male
  Weight: 99 kg

DRUGS (15)
  1. MODAFINIL [Suspect]
     Active Substance: MODAFINIL
     Indication: Hypersomnia
     Route: 048
     Dates: start: 20250310, end: 20250410
  2. POTASSIUM CHLORIDE [Concomitant]
     Active Substance: POTASSIUM CHLORIDE
  3. RIVASTIGMINE [Concomitant]
     Active Substance: RIVASTIGMINE
  4. LOSARTAN [Concomitant]
     Active Substance: LOSARTAN
  5. MEMANTINE [Concomitant]
     Active Substance: MEMANTINE
  6. metroporolol [Concomitant]
  7. PROSCAR [Concomitant]
     Active Substance: FINASTERIDE
  8. xenazinelipitor [Concomitant]
  9. FLOMAX [Concomitant]
     Active Substance: TAMSULOSIN HYDROCHLORIDE
  10. hygrotennorvasc [Concomitant]
  11. ASPIRIN [Concomitant]
     Active Substance: ASPIRIN
  12. DEVICE [Concomitant]
     Active Substance: DEVICE
  13. VITAMIN OMEGA 3 [Concomitant]
  14. NEURO PS [Concomitant]
  15. CALCIUM [Concomitant]
     Active Substance: CALCIUM

REACTIONS (4)
  - Confusional state [None]
  - Memory impairment [None]
  - Tongue movement disturbance [None]
  - Dyskinesia [None]

NARRATIVE: CASE EVENT DATE: 20250310
